FAERS Safety Report 4546844-7 (Version None)
Quarter: 2005Q1

REPORT INFORMATION
  Report Type: 
  Country: None (occurrence: None)
  Receive Date: 20050106
  Receipt Date: 20041105
  Transmission Date: 20050727
  Serious: Yes (Life-Threatening, Hospitalization, Other)
  Sender: FDA-Public Use
  Company Number: US-MERCK-0411USA00976

PATIENT
  Age: 69 Year
  Sex: Female
  Weight: 89 kg

DRUGS (15)
  1. ZOCOR [Suspect]
     Indication: BLOOD CHOLESTEROL INCREASED
     Route: 048
     Dates: start: 20030101
  2. ZOCOR [Suspect]
     Route: 048
     Dates: start: 20011231
  3. ZOCOR [Suspect]
     Indication: LIPIDS INCREASED
     Route: 048
     Dates: start: 20030101
  4. ZOCOR [Suspect]
     Route: 048
     Dates: start: 20011231
  5. PLAVIX [Concomitant]
     Route: 065
  6. AVANDIA [Concomitant]
     Route: 065
  7. ARIMIDEX [Concomitant]
     Route: 065
  8. LASIX [Concomitant]
     Route: 065
  9. GLYBURIDE [Concomitant]
     Route: 065
  10. LOPRESSOR [Concomitant]
     Route: 065
  11. LISINOPRIL [Concomitant]
     Route: 065
  12. HYDROCHLOROTHIAZIDE AND TRIAMTERENE [Concomitant]
     Route: 065
  13. NITRO-BID [Concomitant]
     Route: 065
  14. ATROVENT [Concomitant]
     Route: 065
  15. PROCRIT [Concomitant]
     Route: 065

REACTIONS (3)
  - ACUTE MYOCARDIAL INFARCTION [None]
  - ANGINA UNSTABLE [None]
  - MUSCLE SPASMS [None]
